FAERS Safety Report 4504424-3 (Version None)
Quarter: 2004Q4

REPORT INFORMATION
  Report Type: 
  Country: None (occurrence: None)
  Receive Date: 20041116
  Receipt Date: 20041112
  Transmission Date: 20050328
  Serious: Yes (Other)
  Sender: FDA-Public Use
  Company Number: US-SHR-04-022430

PATIENT
  Age: 33 Year
  Sex: Female

DRUGS (5)
  1. TRI-LEVLEN 28 [Suspect]
     Indication: ORAL CONTRACEPTION
     Dosage: 1 TAB (S), 1X/DAY, ORAL
     Route: 048
     Dates: start: 20010101, end: 20020101
  2. TRI-LEVLEN 28 [Suspect]
     Indication: ORAL CONTRACEPTION
     Dosage: 1 TAB (S), 1X/DAY, ORAL
     Route: 048
     Dates: start: 20040101
  3. ORTHO-NOVUM [Suspect]
     Indication: ORAL CONTRACEPTION
     Dosage: 1 TAB (S), 1X/DAY, ORAL
     Route: 048
  4. ALESSE [Suspect]
     Indication: ORAL CONTRACEPTION
     Dosage: 1 TAB (S), 1X/DAY, ORAL
     Route: 048
  5. ORAL CONTRACEPTIVE NOS (ORAL CONTRACEPTIVE NOS) [Suspect]
     Indication: ORAL CONTRACEPTION
     Dosage: 1 TAB (S), 1X/DAY, ORAL
     Route: 048

REACTIONS (1)
  - AUTOIMMUNE HEPATITIS [None]
